FAERS Safety Report 4982736-7 (Version None)
Quarter: 2006Q2

REPORT INFORMATION
  Report Type: 
  Country: None (occurrence: None)
  Receive Date: 20060425
  Receipt Date: 20041102
  Transmission Date: 20061013
  Serious: Yes (Death)
  Sender: FDA-Public Use
  Company Number: US-MERCK-0411USA00494

PATIENT
  Age: 65 Year
  Sex: Female
  Weight: 90 kg

DRUGS (2)
  1. VIOXX [Suspect]
     Indication: ARTHRALGIA
     Route: 048
     Dates: start: 20011004, end: 20011011
  2. VIOXX [Suspect]
     Indication: BACK PAIN
     Route: 048
     Dates: start: 20011004, end: 20011011

REACTIONS (5)
  - CARDIO-RESPIRATORY ARREST [None]
  - DIABETES MELLITUS NON-INSULIN-DEPENDENT [None]
  - HYPERTENSIVE HEART DISEASE [None]
  - HYPOKALAEMIA [None]
  - PULMONARY OEDEMA [None]
